FAERS Safety Report 4373898-3 (Version None)
Quarter: 2004Q1

REPORT INFORMATION
  Report Type: 
  Country: None (occurrence: None)
  Receive Date: 20040305
  Receipt Date: 20040121
  Transmission Date: 20041129
  Serious: Yes (Other)
  Sender: FDA-Public Use
  Company Number: 2004UW01114

PATIENT
  Age: 69 Year
  Sex: Female
  Weight: 79.3795 kg

DRUGS (11)
  1. CRESTOR [Suspect]
     Indication: BLOOD TRIGLYCERIDES INCREASED
     Dosage: 20 MG
     Dates: start: 20030901
  2. SPIRONOLACTONE [Concomitant]
  3. CARDIZEM [Concomitant]
  4. SYNTHROID [Concomitant]
  5. ZOLOFT [Concomitant]
  6. CALCIUM WITH VITAMIN D [Concomitant]
  7. VITAMIN E/GFR [Concomitant]
  8. CLONAZEPAM [Concomitant]
  9. ASPIRIN [Concomitant]
  10. VITAMIN C [Concomitant]
  11. STOOL SOFTENER [Concomitant]

REACTIONS (1)
  - ALOPECIA [None]
